FAERS Safety Report 24316812 (Version 1)
Quarter: 2024Q3

REPORT INFORMATION
  Report Type: Spontaneous
  Country: US (occurrence: US)
  Receive Date: 20240913
  Receipt Date: 20240913
  Transmission Date: 20241016
  Serious: No
  Sender: SANOFI AVENTIS
  Company Number: US-SA-2024SA264561

PATIENT
  Age: 65 Year
  Sex: Female

DRUGS (1)
  1. AUBAGIO [Suspect]
     Active Substance: TERIFLUNOMIDE
     Indication: Multiple sclerosis
     Dosage: UNK
     Dates: start: 2017

REACTIONS (14)
  - Gait disturbance [Unknown]
  - COVID-19 [Unknown]
  - Hypoaesthesia [Unknown]
  - Bladder discomfort [Unknown]
  - Urinary incontinence [Unknown]
  - Dizziness [Unknown]
  - Disturbance in attention [Unknown]
  - Balance disorder [Unknown]
  - Thyroid disorder [Unknown]
  - Speech disorder [Unknown]
  - Back pain [Unknown]
  - Urinary tract infection [Unknown]
  - Anxiety [Unknown]
  - Nausea [Unknown]

NARRATIVE: CASE EVENT DATE: 20230101
